FAERS Safety Report 16731395 (Version 1)
Quarter: 2019Q3

REPORT INFORMATION
  Report Type: Report from Study
  Country: US (occurrence: US)
  Receive Date: 20190822
  Receipt Date: 20190822
  Transmission Date: 20191005
  Serious: Yes (Hospitalization)
  Sender: FDA-Public Use
  Company Number: US-BAYER-2019-154057

PATIENT
  Age: 80 Year
  Sex: Male
  Weight: 80.27 kg

DRUGS (3)
  1. ADEMPAS [Suspect]
     Active Substance: RIOCIGUAT
     Indication: PULMONARY ARTERIAL HYPERTENSION
     Dosage: UNK
  2. WARFARIN [Concomitant]
     Active Substance: WARFARIN
     Dosage: UNK
  3. ADEMPAS [Suspect]
     Active Substance: RIOCIGUAT
     Indication: PULMONARY ARTERIAL HYPERTENSION
     Dosage: 2.5 MG, TID
     Route: 048
     Dates: start: 20190816

REACTIONS (7)
  - Balance disorder [Recovering/Resolving]
  - Dizziness [Recovering/Resolving]
  - Incorrect dose administered [None]
  - Headache [Recovering/Resolving]
  - Wrong technique in product usage process [None]
  - Product use issue [None]
  - Hospitalisation [None]

NARRATIVE: CASE EVENT DATE: 201908
